FAERS Safety Report 26014374 (Version 1)
Quarter: 2025Q4

REPORT INFORMATION
  Report Type: Spontaneous
  Country: US (occurrence: US)
  Receive Date: 20251108
  Receipt Date: 20251108
  Transmission Date: 20260118
  Serious: No
  Sender: NOVARTIS
  Company Number: US-002147023-NVSC2025US168463

PATIENT
  Sex: Female

DRUGS (1)
  1. COSENTYX [Suspect]
     Active Substance: SECUKINUMAB
     Indication: Product used for unknown indication
     Dosage: 150 MILLIGRAM PER MILLILITRE (1X30 DAYS) (INJECTION)
     Route: 065

REACTIONS (2)
  - Incorrect dose administered by device [Unknown]
  - Needle issue [Unknown]
